FAERS Safety Report 12663212 (Version 1)
Quarter: 2016Q3

REPORT INFORMATION
  Report Type: Spontaneous
  Country: US (occurrence: None)
  Receive Date: 20160817
  Receipt Date: 20160817
  Transmission Date: 20161109
  Serious: No
  Sender: FDA-Public Use
  Company Number: None

PATIENT
  Age: 86 Year
  Sex: Female
  Weight: 58.97 kg

DRUGS (15)
  1. ASPIRIN. [Concomitant]
     Active Substance: ASPIRIN
  2. OLIVE LEAF EXTRACT [Concomitant]
  3. APPLE CIDER VINEGAR PILLS [Concomitant]
  4. COENZYME Q-10 [Concomitant]
  5. ACIDOPHILUS PROBIOTIC [Concomitant]
  6. POTASSIUM [Concomitant]
     Active Substance: POTASSIUM
  7. GEMFIBROZIL 600MG [Suspect]
     Active Substance: GEMFIBROZIL
     Indication: BLOOD CHOLESTEROL INCREASED
     Dosage: 600MG 1 PILL PER DAY ONCE A DAY BY MOUTH
     Route: 048
     Dates: start: 20160628, end: 20160728
  8. LASIX [Concomitant]
     Active Substance: FUROSEMIDE
  9. GEMFIBROZIL 600MG [Suspect]
     Active Substance: GEMFIBROZIL
     Indication: BLOOD PRESSURE INCREASED
     Dosage: 600MG 1 PILL PER DAY ONCE A DAY BY MOUTH
     Route: 048
     Dates: start: 20160628, end: 20160728
  10. OCUTAB + LUTEIN [Concomitant]
  11. RESVEATROLT [Concomitant]
  12. LOSARTAN. [Concomitant]
     Active Substance: LOSARTAN
  13. NORVASC [Concomitant]
     Active Substance: AMLODIPINE BESYLATE
  14. ISOSORBIDE DINITRATE. [Concomitant]
     Active Substance: ISOSORBIDE DINITRATE
  15. VITAMIN D3 [Concomitant]
     Active Substance: CHOLECALCIFEROL

REACTIONS (5)
  - Dehydration [None]
  - Diarrhoea [None]
  - Memory impairment [None]
  - Disturbance in attention [None]
  - Delusion [None]

NARRATIVE: CASE EVENT DATE: 20160728
